FAERS Safety Report 9301598 (Version 2)
Quarter: 2013Q3

REPORT INFORMATION
  Report Type: Spontaneous
  Country: DE (occurrence: DE)
  Receive Date: 20130521
  Receipt Date: 20130711
  Transmission Date: 20140515
  Serious: Yes (Life-Threatening, Hospitalization, Other)
  Sender: FDA-Public Use
  Company Number: DE-VERTEX PHARMACEUTICALS INC-2013-006260

PATIENT
  Age: 61 Year
  Sex: Female
  Weight: 82 kg

DRUGS (6)
  1. INCIVO [Suspect]
     Indication: CHRONIC HEPATITIS C
     Dosage: 375 MG, TID
     Route: 048
     Dates: start: 20120110, end: 20120408
  2. HEPARIN [Suspect]
     Indication: PRODUCT USED FOR UNKNOWN INDICATION
     Dosage: DOSAGE FORM: UNKNOWN
     Route: 065
  3. RIBAVIRIN [Concomitant]
     Indication: CHRONIC HEPATITIS C
     Dosage: 400 MG, BID
     Route: 048
     Dates: start: 20120110, end: 20120331
  4. RIBAVIRIN [Concomitant]
     Dosage: 600 MG, UNK
     Route: 048
     Dates: start: 20120401, end: 20120430
  5. PEGINTERFERON ALFA-2A [Concomitant]
     Indication: CHRONIC HEPATITIS C
     Dosage: 180 ?G, QW
     Route: 058
     Dates: start: 20120110
  6. PEGINTERFERON ALFA-2A [Concomitant]
     Dosage: 135 ?G, QW
     Route: 058
     Dates: end: 20120430

REACTIONS (6)
  - Urinary tract infection [Unknown]
  - Gastritis [Unknown]
  - Abdominal wall haematoma [Unknown]
  - Abscess [Unknown]
  - Anaemia [Recovered/Resolved]
  - Drug reaction with eosinophilia and systemic symptoms [Recovered/Resolved]
